FAERS Safety Report 5272291-9 (Version None)
Quarter: 2007Q1

REPORT INFORMATION
  Report Type: 
  Country: None (occurrence: None)
  Receive Date: 20070322
  Receipt Date: 20070308
  Transmission Date: 20070707
  Serious: Yes (Death)
  Sender: FDA-Public Use
  Company Number: US-JNJFOC-20070302565

PATIENT
  Age: 15 Year
  Sex: Male

DRUGS (2)
  1. EXTRA STRENGTH TYLENOL [Suspect]
     Indication: DRUG ABUSER
     Dosage: UNKNOWN
  2. BLACK TAR HEROIN [Suspect]
     Indication: DRUG ABUSER
     Dosage: UNKNOWN

REACTIONS (2)
  - OVERDOSE [None]
  - SUBSTANCE ABUSE [None]
